FAERS Safety Report 6903635-7 (Version None)
Quarter: 2010Q3

REPORT INFORMATION
  Report Type: 
  Country: None (occurrence: None)
  Receive Date: 20100803
  Receipt Date: 20081027
  Transmission Date: 20110219
  Serious: No
  Sender: FDA-Public Use
  Company Number: US-PFIZER INC-2008090562

PATIENT
  Sex: Female
  Weight: 110.4 kg

DRUGS (4)
  1. LYRICA [Suspect]
     Indication: PAIN
     Dates: start: 20081001
  2. PLAVIX [Concomitant]
  3. VYTORIN [Concomitant]
  4. DIOVANE [Concomitant]

REACTIONS (1)
  - MYALGIA [None]
